FAERS Safety Report 7243104-0 (Version None)
Quarter: 2011Q1

REPORT INFORMATION
  Report Type: 
  Country: None (occurrence: None)
  Receive Date: 20110118
  Receipt Date: 20110103
  Transmission Date: 20110831
  Serious: Yes (Life-Threatening, Other)
  Sender: FDA-Public Use
  Company Number: 11-001-01

PATIENT
  Age: 36 Year
  Sex: Female

DRUGS (7)
  1. PRIMIODONE [Concomitant]
  2. OXCARBAZEPINE [Concomitant]
  3. VIGABATRIN [Concomitant]
  4. VALPROATE [Concomitant]
  5. LAMOTRIGINE [Concomitant]
  6. LEVETIRACETAM [Suspect]
     Indication: EPILEPSY
     Dosage: 500-2000 MG, BID;
  7. TOPIRAMATE [Concomitant]

REACTIONS (7)
  - CONVULSION [None]
  - AGITATION [None]
  - SUICIDE ATTEMPT [None]
  - TREMOR [None]
  - IRRITABILITY [None]
  - NERVOUSNESS [None]
  - HYPERVENTILATION [None]
